FAERS Safety Report 19087250 (Version 1)
Quarter: 2021Q2

REPORT INFORMATION
  Report Type: Spontaneous
  Country: US (occurrence: US)
  Receive Date: 20210402
  Receipt Date: 20210402
  Transmission Date: 20210717
  Serious: No
  Sender: FDA-Public Use
  Company Number: None

PATIENT
  Age: 59 Year
  Sex: Female
  Weight: 135 kg

DRUGS (14)
  1. XTAMPZA [Suspect]
     Active Substance: OXYCODONE
  2. PREGABALIN. [Concomitant]
     Active Substance: PREGABALIN
  3. POTASSIUM CHLORIDE. [Concomitant]
     Active Substance: POTASSIUM CHLORIDE
  4. HUMALOG [Concomitant]
     Active Substance: INSULIN LISPRO
  5. OXYCODONE 15 MG IMMEDIATE REL TABS [Suspect]
     Active Substance: OXYCODONE
     Indication: ARTHRALGIA
     Dosage: ?          QUANTITY:120 TABLET(S);?
     Route: 048
     Dates: start: 20210314, end: 20210327
  6. HYDRALAZINE [Concomitant]
     Active Substance: HYDRALAZINE HYDROCHLORIDE
  7. CARVEDILOL. [Concomitant]
     Active Substance: CARVEDILOL
  8. LISINOPRIL. [Concomitant]
     Active Substance: LISINOPRIL
  9. WAL?DRYL [Concomitant]
     Active Substance: DIPHENHYDRAMINE HYDROCHLORIDE
  10. HYDROCHLORIDE [Concomitant]
     Active Substance: UNSPECIFIED INGREDIENT
  11. HYDROXYZINE HCL 25 MG [Concomitant]
     Active Substance: HYDROXYZINE HYDROCHLORIDE
  12. AMLODIPINE [Concomitant]
     Active Substance: AMLODIPINE BESYLATE
  13. LEVEMIR [Concomitant]
     Active Substance: INSULIN DETEMIR
  14. OXYCODONE 15 MG IMMEDIATE REL TABS [Suspect]
     Active Substance: OXYCODONE
     Indication: CERVICAL RADICULOPATHY
     Dosage: ?          QUANTITY:120 TABLET(S);?
     Route: 048
     Dates: start: 20210314, end: 20210327

REACTIONS (4)
  - Rash [None]
  - Somnolence [None]
  - Suspected counterfeit product [None]
  - Burning sensation [None]

NARRATIVE: CASE EVENT DATE: 20210321
